FAERS Safety Report 6438204-9 (Version None)
Quarter: 2009Q4

REPORT INFORMATION
  Report Type: 
  Country: None (occurrence: None)
  Receive Date: 20091109
  Receipt Date: 20091030
  Transmission Date: 20100525
  Serious: Yes (Death, Hospitalization)
  Sender: FDA-Public Use
  Company Number: 2009SP033090

PATIENT
  Age: 51 Year
  Sex: Male
  Weight: 45 kg

DRUGS (11)
  1. REMERON [Suspect]
     Indication: DEPRESSION
     Dosage: 15 MG;QD;PO; 30 MG;QD; PO
     Route: 048
     Dates: start: 20090909, end: 20090924
  2. REMERON [Suspect]
     Indication: DEPRESSION
     Dosage: 15 MG;QD;PO; 30 MG;QD; PO
     Route: 048
     Dates: start: 20090925, end: 20090929
  3. AMOXAN [Concomitant]
  4. DOGMATYL [Concomitant]
  5. LULLAN [Concomitant]
  6. DEPAS [Concomitant]
  7. PROMAC D [Concomitant]
  8. HALCION [Concomitant]
  9. BENZALIN [Concomitant]
  10. GASMOTIN [Concomitant]
  11. SEPAZON [Concomitant]

REACTIONS (3)
  - EXTRADURAL HAEMATOMA [None]
  - POSTOPERATIVE WOUND COMPLICATION [None]
  - WOUND HAEMORRHAGE [None]
